FAERS Safety Report 7815863-7 (Version None)
Quarter: 2011Q4

REPORT INFORMATION
  Report Type: 
  Country: None (occurrence: None)
  Receive Date: 20111014
  Receipt Date: 20111005
  Transmission Date: 20120403
  Serious: Yes (Hospitalization)
  Sender: FDA-Public Use
  Company Number: US-GILEAD-2011-0045141

PATIENT

DRUGS (7)
  1. ALENDRONATE SODIUM [Concomitant]
     Indication: OSTEOPOROSIS
     Dosage: UNK
     Dates: start: 20080101
  2. CALCITRIOL [Concomitant]
     Indication: OSTEOPOROSIS
     Dosage: 1 ?G, QD
  3. TENOFOVIR DISOPROXIL FUMARATE [Suspect]
     Indication: HIV INFECTION
     Dosage: UNK
  4. LAMIVUDINE + ZIDOVUDINE [Concomitant]
     Indication: HIV INFECTION
     Dosage: UNK
  5. VITAMIN D [Concomitant]
     Indication: OSTEOPOROSIS
     Dosage: UNK
  6. CALCIUM CARBONATE [Concomitant]
     Indication: OSTEOPOROSIS
     Dosage: UNK
  7. ERGOCALCIFEROL [Concomitant]
     Indication: OSTEOPOROSIS
     Dosage: 50000 IU, Q1WK

REACTIONS (2)
  - FANCONI SYNDROME ACQUIRED [None]
  - HIP FRACTURE [None]
